FAERS Safety Report 4293133-4 (Version None)
Quarter: 2004Q1

REPORT INFORMATION
  Report Type: 
  Country: None (occurrence: None)
  Receive Date: 20040212
  Receipt Date: 20030522
  Transmission Date: 20041129
  Serious: No
  Sender: FDA-Public Use
  Company Number: US-GLAXOSMITHKLINE-A0409366A

PATIENT
  Sex: Female

DRUGS (6)
  1. PAXIL [Suspect]
     Indication: DEPRESSION
     Dosage: 10MG TWICE PER DAY
     Route: 048
     Dates: start: 19990101, end: 20030201
  2. ZYPREXA [Concomitant]
  3. AVENTYL HCL [Concomitant]
  4. LEVOXYL [Concomitant]
  5. CELEBREX [Concomitant]
  6. EVISTA [Concomitant]

REACTIONS (1)
  - CATARACT [None]
